FAERS Safety Report 15739188 (Version 1)
Quarter: 2018Q4

REPORT INFORMATION
  Report Type: Spontaneous
  Country: US (occurrence: US)
  Receive Date: 20181218
  Receipt Date: 20181218
  Transmission Date: 20190205
  Serious: Yes (Other)
  Sender: FDA-Public Use
  Company Number: None

PATIENT
  Age: 51 Year
  Sex: Female
  Weight: 90 kg

DRUGS (5)
  1. SINGULAIR [Concomitant]
     Active Substance: MONTELUKAST SODIUM
  2. PREDNISONE. [Suspect]
     Active Substance: PREDNISONE
     Indication: DERMATITIS ATOPIC
     Dosage: ?          QUANTITY:10 TABLET(S);?
     Route: 048
     Dates: start: 20181201, end: 20181204
  3. LOSARTAN. [Concomitant]
     Active Substance: LOSARTAN
  4. GNC WOMEN^S RIPPED PACK [Concomitant]
  5. CALCITROL [Concomitant]
     Active Substance: CALCITRIOL

REACTIONS (3)
  - Vision blurred [None]
  - Myopia [None]
  - Hypermetropia [None]

NARRATIVE: CASE EVENT DATE: 20181202
